FAERS Safety Report 24658369 (Version 1)
Quarter: 2024Q4

REPORT INFORMATION
  Report Type: Spontaneous
  Country: US (occurrence: US)
  Receive Date: 20241125
  Receipt Date: 20241125
  Transmission Date: 20250115
  Serious: Yes (Other)
  Sender: Kenvue
  Company Number: US-KENVUE-20241105282

PATIENT
  Age: 85 Year
  Sex: Female

DRUGS (2)
  1. TYLENOL EXTRA STRENGTH CAPLET [Suspect]
     Active Substance: ACETAMINOPHEN
     Indication: Procedural pain
     Dosage: 2 DOSAGE FORM, EVERY 4 HOUR
     Route: 048
     Dates: start: 20241105
  2. OXYCODONE [Suspect]
     Active Substance: OXYCODONE
     Indication: Procedural pain
     Route: 048

REACTIONS (4)
  - Choking [Recovered/Resolved]
  - Product physical issue [Unknown]
  - Inappropriate schedule of product administration [Unknown]
  - Vomiting [Unknown]

NARRATIVE: CASE EVENT DATE: 20241101
